FAERS Safety Report 7135859-0 (Version None)
Quarter: 2010Q4

REPORT INFORMATION
  Report Type: 
  Country: None (occurrence: None)
  Receive Date: 20101203
  Receipt Date: 20101120
  Transmission Date: 20110411
  Serious: Yes (Life-Threatening)
  Sender: FDA-Public Use
  Company Number: SE-GENZYME-CAMP-1001155

PATIENT
  Age: 74 Year
  Sex: Male

DRUGS (2)
  1. CAMPATH [Suspect]
     Indication: CHRONIC LYMPHOCYTIC LEUKAEMIA
     Dosage: 30 MG, 3X/W
     Route: 058
  2. FLUDARABINE PHOSPHATE [Suspect]
     Indication: CHRONIC LYMPHOCYTIC LEUKAEMIA
     Dosage: UNK
     Route: 065

REACTIONS (7)
  - ASCITES [None]
  - CAPILLARY LEAK SYNDROME [None]
  - JAUNDICE [None]
  - LYMPHOHISTIOCYTOSIS [None]
  - MULTI-ORGAN FAILURE [None]
  - OEDEMA [None]
  - PYREXIA [None]
